FAERS Safety Report 9883661 (Version 4)
Quarter: 2014Q2

REPORT INFORMATION
  Report Type: Report from Study
  Country: GB (occurrence: GB)
  Receive Date: 20140210
  Receipt Date: 20140403
  Transmission Date: 20141212
  Serious: Yes (Hospitalization)
  Sender: FDA-Public Use
  Company Number: GB-AMGEN-GBRCT2014008904

PATIENT
  Age: 44 Year
  Sex: Female
  Weight: 83.3 kg

DRUGS (2)
  1. ETANERCEPT [Suspect]
     Indication: ANKYLOSING SPONDYLITIS
     Dosage: 25 MG, UNK
     Route: 065
     Dates: start: 20120615, end: 20130315
  2. ETANERCEPT [Suspect]
     Indication: SERONEGATIVE ARTHRITIS
     Dosage: UNK
     Route: 065

REACTIONS (1)
  - Palpitations [Unknown]
